FAERS Safety Report 5334479-8 (Version None)
Quarter: 2007Q2

REPORT INFORMATION
  Report Type: 
  Country: None (occurrence: None)
  Receive Date: 20070525
  Receipt Date: 20070515
  Transmission Date: 20071010
  Serious: Yes (Other)
  Sender: FDA-Public Use
  Company Number: US-NOVOPROD-263745

PATIENT
  Age: 75 Year
  Sex: Male

DRUGS (5)
  1. PRANDIN [Suspect]
     Indication: DIABETES MELLITUS NON-INSULIN-DEPENDENT
     Dosage: UNKNOWN
     Route: 048
     Dates: start: 20070101
  2. LIPITOR [Concomitant]
     Indication: ILL-DEFINED DISORDER
  3. FLOMAX                             /01280302/ [Concomitant]
     Indication: ILL-DEFINED DISORDER
  4. COZAAR [Concomitant]
     Indication: ILL-DEFINED DISORDER
  5. TOFRANIL                           /00053902/ [Concomitant]
     Indication: ILL-DEFINED DISORDER

REACTIONS (1)
  - MYELODYSPLASTIC SYNDROME [None]
